FAERS Safety Report 24314576 (Version 1)
Quarter: 2024Q3

REPORT INFORMATION
  Report Type: Spontaneous
  Country: AU (occurrence: AU)
  Receive Date: 20240913
  Receipt Date: 20240913
  Transmission Date: 20241016
  Serious: Yes (Death, Hospitalization)
  Sender: NOVO NORDISK
  Company Number: None

PATIENT
  Age: 81 Year
  Sex: Female

DRUGS (2)
  1. OZEMPIC [Suspect]
     Active Substance: SEMAGLUTIDE
     Indication: Type 2 diabetes mellitus
  2. OZEMPIC [Suspect]
     Active Substance: SEMAGLUTIDE
     Indication: Obesity
     Dosage: UNK
     Dates: start: 2022

REACTIONS (11)
  - Dysphagia [Fatal]
  - Fall [Unknown]
  - Pneumonia aspiration [Fatal]
  - Respiratory arrest [Fatal]
  - Bezoar [Unknown]
  - Hiatus hernia [Unknown]
  - Lung consolidation [Unknown]
  - Lymphadenopathy [Unknown]
  - Odynophagia [Unknown]
  - Vomiting [Unknown]
  - Eructation [Unknown]
